FAERS Safety Report 4948418-2 (Version None)
Quarter: 2006Q1

REPORT INFORMATION
  Report Type: 
  Country: None (occurrence: None)
  Receive Date: 20060313
  Receipt Date: 20060223
  Transmission Date: 20060701
  Serious: Yes (Hospitalization)
  Sender: FDA-Public Use
  Company Number: DSA_27822_2006

PATIENT
  Age: 31 Year
  Sex: Male

DRUGS (11)
  1. TAVOR [Suspect]
     Dosage: DF, ONCE; PO
     Route: 048
     Dates: start: 20060223, end: 20060223
  2. AMITRYPTYLINE [Suspect]
     Dosage: DF ONCE; PO
     Route: 048
     Dates: start: 20060223, end: 20060223
  3. BROMAZANIL [Suspect]
     Dosage: DF ONCE; PO
     Route: 048
     Dates: start: 20060223, end: 20060223
  4. DIAZEPAM [Suspect]
     Dosage: DF ONCE; PO
     Route: 048
     Dates: start: 20060223, end: 20060223
  5. DOXEPIN [Suspect]
     Dosage: DF ONCE; PO
     Route: 048
     Dates: start: 20060223, end: 20060223
  6. OXAZEPAM [Suspect]
     Dosage: DF ONCE; PO
     Route: 048
     Dates: start: 20060223, end: 20060223
  7. MIRTAZAPINE [Suspect]
     Dosage: DF ONCE, PO
     Route: 048
     Dates: start: 20060223, end: 20060223
  8. STANGYL         /00051802/ [Suspect]
     Dosage: DF ONCE; PO
     Route: 048
     Dates: start: 20060223, end: 20060223
  9. TRANXILLIUM [Suspect]
     Dosage: DF ONCE; PO
     Route: 048
     Dates: start: 20060223, end: 20060223
  10. ZOPICLONE [Suspect]
     Dosage: DF ONCE; PO
     Route: 048
     Dates: start: 20060223, end: 20060223
  11. WINE [Suspect]
     Dosage: 1.5 BOTTLE ONCE; PO
     Route: 048
     Dates: start: 20060223, end: 20060223

REACTIONS (10)
  - ACIDOSIS [None]
  - ACUTE RESPIRATORY DISTRESS SYNDROME [None]
  - ASPIRATION [None]
  - COLONIC ATONY [None]
  - COMA [None]
  - MULTIPLE DRUG OVERDOSE [None]
  - PCO2 INCREASED [None]
  - SUICIDE ATTEMPT [None]
  - TACHYCARDIA [None]
  - VOMITING [None]
